FAERS Safety Report 5261841-4 (Version None)
Quarter: 2007Q1

REPORT INFORMATION
  Report Type: 
  Country: None (occurrence: None)
  Receive Date: 20070310
  Receipt Date: 20070228
  Transmission Date: 20070707
  Serious: No
  Sender: FDA-Public Use
  Company Number: 2006UW08047

PATIENT
  Age: 574 Month
  Sex: Female
  Weight: 103.6 kg

DRUGS (2)
  1. SEROQUEL [Suspect]
     Indication: BIPOLAR DISORDER
     Route: 048
     Dates: start: 19980101
  2. ZYPREXA [Suspect]
     Dates: start: 19960101

REACTIONS (2)
  - DIABETES MELLITUS [None]
  - HYPERLIPIDAEMIA [None]
